FAERS Safety Report 5071433-8 (Version None)
Quarter: 2006Q3

REPORT INFORMATION
  Report Type: 
  Country: None (occurrence: None)
  Receive Date: 20060803
  Receipt Date: 20060803
  Transmission Date: 20061208
  Serious: Yes (Hospitalization)
  Sender: FDA-Public Use
  Company Number: None

PATIENT
  Sex: Female
  Weight: 62.5964 kg

DRUGS (2)
  1. CYMBALTA [Suspect]
     Indication: DEPRESSION
     Dosage: PO
     Route: 048
     Dates: start: 20050712, end: 20060719
  2. CYMBALTA [Suspect]
     Indication: NEUROPATHY
     Dosage: PO
     Route: 048
     Dates: start: 20050712, end: 20060719

REACTIONS (3)
  - ASTHENIA [None]
  - FALL [None]
  - HYPONATRAEMIA [None]
